FAERS Safety Report 19810987 (Version 1)
Quarter: 2021Q3

REPORT INFORMATION
  Report Type: Spontaneous
  Country: FR (occurrence: FR)
  Receive Date: 20210910
  Receipt Date: 20210910
  Transmission Date: 20211014
  Serious: Yes (Hospitalization)
  Sender: FDA-Public Use
  Company Number: FR-ORION CORPORATION ORION PHARMA-TREX2021-0062

PATIENT
  Age: 2 Year
  Sex: Female

DRUGS (1)
  1. IMETH [Suspect]
     Active Substance: METHOTREXATE SODIUM
     Indication: PRODUCT USED FOR UNKNOWN INDICATION
     Dosage: STRENGTH: 10MG, DOSE: 70 MILLIGRAM 7 TABLETS
     Route: 048
     Dates: start: 20210510, end: 20210510

REACTIONS (3)
  - Accidental overdose [Unknown]
  - Accidental exposure to product by child [Recovered/Resolved]
  - Drug screen positive [Recovering/Resolving]
